FAERS Safety Report 5374817-3 (Version None)
Quarter: 2007Q2

REPORT INFORMATION
  Report Type: 
  Country: None (occurrence: None)
  Receive Date: 20070629
  Receipt Date: 20070627
  Transmission Date: 20071010
  Serious: Yes (Other)
  Sender: FDA-Public Use
  Company Number: A0660349A

PATIENT
  Age: 90 Year
  Sex: Female

DRUGS (4)
  1. COREG [Suspect]
     Indication: HYPERTENSION
     Dosage: 12.5MG TWICE PER DAY
     Route: 048
  2. ASPIRIN [Concomitant]
  3. ACTONEL [Concomitant]
  4. MULTIVITAMIN [Concomitant]

REACTIONS (5)
  - CEREBROVASCULAR ACCIDENT [None]
  - DIZZINESS [None]
  - DRY EYE [None]
  - NERVOUS SYSTEM DISORDER [None]
  - VERTIGO [None]
